FAERS Safety Report 24405029 (Version 1)
Quarter: 2024Q4

REPORT INFORMATION
  Report Type: Spontaneous
  Country: US (occurrence: None)
  Receive Date: 20241004
  Receipt Date: 20241004
  Transmission Date: 20250114
  Serious: Yes (unspecified)
  Sender: Public
  Company Number: None

PATIENT
  Age: 15 Year
  Sex: Male
  Weight: 27.3 kg

DRUGS (1)
  1. GAMMAGARD LIQUID [Suspect]
     Active Substance: HUMAN IMMUNOGLOBULIN G
     Dosage: OTHER FREQUENCY : ONCE;?
     Route: 042
     Dates: start: 20240917, end: 20240917

REACTIONS (3)
  - Antibody test positive [None]
  - Haemolysis [None]
  - Haemolytic anaemia [None]

NARRATIVE: CASE EVENT DATE: 20240919
